FAERS Safety Report 5498980-9 (Version None)
Quarter: 2007Q4

REPORT INFORMATION
  Report Type: 
  Country: None (occurrence: None)
  Receive Date: 20071026
  Receipt Date: 20070511
  Transmission Date: 20080405
  Serious: No
  Sender: FDA-Public Use
  Company Number: A0651026A

PATIENT
  Age: 74 Year
  Sex: Female

DRUGS (10)
  1. ADVAIR DISKUS 100/50 [Suspect]
     Indication: CHRONIC OBSTRUCTIVE PULMONARY DISEASE
     Dosage: 1PUFF TWICE PER DAY
     Route: 055
     Dates: start: 20070501
  2. SYNTHROID [Concomitant]
  3. LEXAPRO [Concomitant]
  4. LISINOPRIL [Concomitant]
  5. NORVASC [Concomitant]
  6. LORAZEPAM [Concomitant]
  7. COUMADIN [Concomitant]
  8. COREG [Concomitant]
  9. ALLEGRA [Concomitant]
  10. AMIODARONE [Concomitant]

REACTIONS (1)
  - HEART RATE INCREASED [None]
